FAERS Safety Report 6566691-4 (Version None)
Quarter: 2010Q1

REPORT INFORMATION
  Report Type: 
  Country: None (occurrence: None)
  Receive Date: 20100202
  Receipt Date: 20100125
  Transmission Date: 20100710
  Serious: Yes (Other)
  Sender: FDA-Public Use
  Company Number: US-AMGEN-KDC387814

PATIENT
  Age: 53 Year
  Sex: Male
  Weight: 119.3 kg

DRUGS (4)
  1. PANITUMUMAB [Suspect]
     Indication: OESOPHAGEAL CARCINOMA
     Route: 042
     Dates: start: 20090528
  2. CISPLATIN [Suspect]
     Route: 042
     Dates: start: 20090528
  3. DOCETAXEL [Suspect]
     Route: 042
     Dates: start: 20090528
  4. RADIATION THERAPY [Concomitant]
     Dates: start: 20090528

REACTIONS (1)
  - LYMPHOPENIA [None]
